FAERS Safety Report 5759015-3 (Version None)
Quarter: 2008Q2

REPORT INFORMATION
  Report Type: 
  Country: None (occurrence: None)
  Receive Date: 20080604
  Receipt Date: 20080523
  Transmission Date: 20081010
  Serious: Yes (Hospitalization)
  Sender: FDA-Public Use
  Company Number: JP-PFIZER INC-2007052523

PATIENT
  Sex: Male

DRUGS (10)
  1. ZITHROMAX [Suspect]
     Indication: OPPORTUNISTIC INFECTION PROPHYLAXIS
     Route: 048
     Dates: start: 20070207, end: 20070530
  2. ZITHROMAX [Suspect]
     Route: 048
  3. NORVIR [Suspect]
     Route: 048
     Dates: start: 20070718
  4. REYATAZ [Suspect]
     Route: 048
     Dates: start: 20070718
  5. TRUVADA [Suspect]
     Route: 048
     Dates: start: 20070718
  6. FOSCAVIR [Suspect]
     Route: 042
     Dates: start: 20070311, end: 20070710
  7. STOCRIN [Concomitant]
     Indication: HIV INFECTION
     Route: 048
     Dates: start: 20070606, end: 20070613
  8. EPZICOM [Concomitant]
     Indication: HIV INFECTION
     Dosage: TEXT:1 TABLET
     Route: 048
     Dates: start: 20070606, end: 20070614
  9. MICAFUNGIN [Concomitant]
     Route: 042
     Dates: start: 20070330, end: 20070611
  10. ITRACONAZOLE [Concomitant]
     Route: 048
     Dates: start: 20070612

REACTIONS (6)
  - DRUG ERUPTION [None]
  - GLAUCOMA [None]
  - HYPOKALAEMIA [None]
  - HYPONATRAEMIA [None]
  - RENAL IMPAIRMENT [None]
  - UVEITIS [None]
